FAERS Safety Report 20840722 (Version 1)
Quarter: 2022Q2

REPORT INFORMATION
  Report Type: Spontaneous
  Country: US (occurrence: US)
  Receive Date: 20220517
  Receipt Date: 20220517
  Transmission Date: 20220721
  Serious: Yes (Other)
  Sender: FDA-Public Use
  Company Number: US-LUPIN PHARMACEUTICALS INC.-2022-07080

PATIENT
  Age: 34 Year
  Sex: Male

DRUGS (19)
  1. GABAPENTIN [Suspect]
     Active Substance: GABAPENTIN
     Indication: Withdrawal syndrome
     Dosage: 100 MG, BID
     Route: 065
  2. OLANZAPINE [Suspect]
     Active Substance: OLANZAPINE
     Indication: Withdrawal syndrome
     Dosage: UNK
     Route: 065
  3. BACLOFEN [Suspect]
     Active Substance: BACLOFEN
     Indication: Withdrawal syndrome
     Dosage: 5 MG, TID
     Route: 065
  4. RISPERIDONE [Suspect]
     Active Substance: RISPERIDONE
     Indication: Withdrawal syndrome
     Dosage: 0.25 MG, BID, ADMINISTERED UNDER A TRIAL
     Route: 065
  5. HALOPERIDOL [Suspect]
     Active Substance: HALOPERIDOL
     Indication: Withdrawal syndrome
     Dosage: UNK
     Route: 065
  6. 4-AMINO-3-PHENYLBUTYRIC ACID [Concomitant]
     Active Substance: 4-AMINO-3-PHENYLBUTYRIC ACID
     Indication: Product used for unknown indication
     Dosage: 1 GRAM, QD, MIXED WITH WATER AND ADMINISTERED
     Route: 065
  7. 4-AMINO-3-PHENYLBUTYRIC ACID [Concomitant]
     Active Substance: 4-AMINO-3-PHENYLBUTYRIC ACID
     Dosage: UNK, 4-5 G MIXED WITH WATER AND ADMINISTERED
     Route: 065
  8. 4-AMINO-3-PHENYLBUTYRIC ACID [Concomitant]
     Active Substance: 4-AMINO-3-PHENYLBUTYRIC ACID
     Dosage: UNK, 8-12 G MIXED WITH WATER AND ADMINISTERED
     Route: 065
  9. 4-AMINO-3-PHENYLBUTYRIC ACID [Concomitant]
     Active Substance: 4-AMINO-3-PHENYLBUTYRIC ACID
     Dosage: UNK, APPROXIMATELY 28.5 G MIXED WITH WATER AND ADMINISTERED
     Route: 065
  10. WELLBUTRIN [Concomitant]
     Active Substance: BUPROPION HYDROCHLORIDE
     Indication: Attention deficit hyperactivity disorder
     Dosage: UNK
     Route: 065
  11. ACAMPROSATE [Concomitant]
     Active Substance: ACAMPROSATE
     Indication: Withdrawal syndrome
     Dosage: 666 MG, TID
     Route: 065
  12. ACAMPROSATE [Concomitant]
     Active Substance: ACAMPROSATE
     Dosage: 333 MG, TID
     Route: 065
  13. ACAMPROSATE [Concomitant]
     Active Substance: ACAMPROSATE
     Dosage: 333 MG, BID
     Route: 065
  14. VYVANSE [Concomitant]
     Active Substance: LISDEXAMFETAMINE DIMESYLATE
     Indication: Attention deficit hyperactivity disorder
     Route: 065
  15. DIAZEPAM [Concomitant]
     Active Substance: DIAZEPAM
     Indication: Agitation
     Dosage: 2.5 MILLIGRAM, QID
     Route: 065
  16. LORAZEPAM [Concomitant]
     Active Substance: LORAZEPAM
     Indication: Sedation
     Dosage: UNK
     Route: 065
  17. MIDAZOLAM [Concomitant]
     Active Substance: MIDAZOLAM
     Indication: Sedation
     Dosage: UNK
     Route: 065
  18. DEXMEDETOMIDINE [Concomitant]
     Active Substance: DEXMEDETOMIDINE
     Indication: Sedation
     Dosage: UNK
     Route: 065
  19. PROPOFOL [Concomitant]
     Active Substance: PROPOFOL
     Indication: Sedation
     Dosage: UNK
     Route: 065

REACTIONS (2)
  - Drug ineffective for unapproved indication [Unknown]
  - Off label use [Unknown]
